FAERS Safety Report 15122194 (Version 1)
Quarter: 2018Q4

REPORT INFORMATION
  Report Type: Spontaneous
  Country: US (occurrence: US)
  Receive Date: 20180709
  Receipt Date: 20180709
  Transmission Date: 20190204
  Serious: No
  Sender: FDA-Public Use
  Company Number: US-BAYER-2018-121089

PATIENT

DRUGS (2)
  1. CLARITIN [Suspect]
     Active Substance: LORATADINE
  2. COPPERTONE WATER BABIES STICK SPF 50 [Suspect]
     Active Substance: OCTINOXATE\OCTOCRYLENE\ZINC OXIDE

REACTIONS (7)
  - Skin weeping [Unknown]
  - Oedema [Unknown]
  - Drug ineffective for unapproved indication [Unknown]
  - Eye swelling [Unknown]
  - Hypersensitivity [Unknown]
  - Swelling face [Unknown]
  - Facial pain [Unknown]
